FAERS Safety Report 7783354-8 (Version None)
Quarter: 2011Q3

REPORT INFORMATION
  Report Type: 
  Country: None (occurrence: None)
  Receive Date: 20110927
  Receipt Date: 20110927
  Transmission Date: 20111222
  Serious: No
  Sender: FDA-Public Use
  Company Number: None

PATIENT
  Age: 59 Year
  Sex: Male
  Weight: 81.8 kg

DRUGS (2)
  1. CLOPIDOGREL [Suspect]
     Indication: PERIPHERAL VASCULAR DISORDER
     Dosage: 75 MG EVERY DAY PO
     Route: 048
     Dates: start: 20110816, end: 20110908
  2. CLOPIDOGREL [Suspect]
     Indication: STENT PLACEMENT
     Dosage: 75 MG EVERY DAY PO
     Route: 048
     Dates: start: 20110816, end: 20110908

REACTIONS (1)
  - ANGIOEDEMA [None]
